FAERS Safety Report 20884239 (Version 6)
Quarter: 2022Q4

REPORT INFORMATION
  Report Type: Report from Study
  Country: JP (occurrence: JP)
  Receive Date: 20220527
  Receipt Date: 20221101
  Transmission Date: 20230112
  Serious: Yes (Death)
  Sender: FDA-Public Use
  Company Number: JP-PFIZER INC-202200762175

PATIENT
  Age: 81 Year
  Sex: Male
  Weight: 55.3 kg

DRUGS (7)
  1. NIRMATRELVIR\RITONAVIR [Suspect]
     Active Substance: NIRMATRELVIR\RITONAVIR
     Indication: COVID-19 treatment
     Dosage: [PF-07321332 300 MG]/[RITONAVIR 100 MG]; 2X/DAY
     Route: 048
     Dates: start: 20220421, end: 20220423
  2. RISPERIDONE [Concomitant]
     Active Substance: RISPERIDONE
     Indication: Delirium
     Dosage: 1 MG, 3X/DAY
     Route: 048
     Dates: start: 20220312, end: 20220421
  3. BIO-THREE [Concomitant]
     Active Substance: HERBALS
     Indication: Gastrointestinal disorder
     Dosage: 1 G, 3X/DAY
     Route: 048
     Dates: start: 20220404, end: 20220421
  4. BIFIDOBACTERIUM SPP. [Concomitant]
     Active Substance: BIFIDOBACTERIUM SPP.
     Indication: Gastrointestinal disorder
     Dosage: 2 G, 3X/DAY
     Route: 048
     Dates: start: 20220406, end: 20220421
  5. DEXAMETHASONE SODIUM PHOSPHATE [Concomitant]
     Active Substance: DEXAMETHASONE SODIUM PHOSPHATE
     Indication: COVID-19
     Dosage: 6.6 MG, 1X/DAY
     Dates: start: 20220422, end: 20220423
  6. AMINO ACIDS\DEXTROSE\ELECTROLYTES NOS\VITAMINS [Concomitant]
     Active Substance: AMINO ACIDS\DEXTROSE\ELECTROLYTES NOS\VITAMINS
     Indication: Adverse event
     Dosage: UNK
     Dates: end: 20220423
  7. FAMOTIDINE [Concomitant]
     Active Substance: FAMOTIDINE
     Dosage: UNK
     Dates: end: 20220421

REACTIONS (2)
  - Drug ineffective [Fatal]
  - Respiratory failure [Fatal]

NARRATIVE: CASE EVENT DATE: 20220423
